FAERS Safety Report 8462271-4 (Version None)
Quarter: 2012Q2

REPORT INFORMATION
  Report Type: 
  Country: None (occurrence: None)
  Receive Date: 20120625
  Receipt Date: 20120612
  Transmission Date: 20120825
  Serious: Yes (Other)
  Sender: FDA-Public Use
  Company Number: US-SHIONOGI, INC-2012000198

PATIENT

DRUGS (4)
  1. ABILIFY [Concomitant]
     Dosage: 25 MG, UNK
     Dates: start: 20070301
  2. KAPVAY [Suspect]
     Dosage: 0.1 MG, BID
     Route: 048
     Dates: start: 20120423, end: 20120430
  3. KAPVAY [Suspect]
     Indication: ATTENTION DEFICIT/HYPERACTIVITY DISORDER
     Dosage: 0.1 MG, UNK
     Route: 048
     Dates: start: 20120412, end: 20120423
  4. KAPVAY [Suspect]
     Dosage: 0.1 MG, QD
     Route: 048
     Dates: start: 20120430, end: 20120509

REACTIONS (1)
  - CONFUSIONAL STATE [None]
